FAERS Safety Report 14965507 (Version 1)
Quarter: 2018Q2

REPORT INFORMATION
  Report Type: Spontaneous
  Country: US (occurrence: US)
  Receive Date: 20180601
  Receipt Date: 20180601
  Transmission Date: 20180711
  Serious: No
  Sender: FDA-Public Use
  Company Number: US-JNJFOC-20180519837

PATIENT
  Age: 24 Month
  Sex: Male
  Weight: 9.53 kg

DRUGS (1)
  1. INFANTS TYLENOL [Suspect]
     Active Substance: ACETAMINOPHEN
     Indication: ACCIDENTAL EXPOSURE TO PRODUCT
     Route: 048
     Dates: start: 20180512

REACTIONS (2)
  - Accidental exposure to product by child [Unknown]
  - Failure of child resistant mechanism for pharmaceutical product [Unknown]

NARRATIVE: CASE EVENT DATE: 20180512
